FAERS Safety Report 20429905 (Version 1)
Quarter: 2022Q1

REPORT INFORMATION
  Report Type: Report from Study
  Country: FR (occurrence: FR)
  Receive Date: 20220204
  Receipt Date: 20220204
  Transmission Date: 20220424
  Serious: Yes (Life-Threatening, Hospitalization, Other)
  Sender: FDA-Public Use
  Company Number: FR-SERVIER-S18010949

PATIENT

DRUGS (9)
  1. PEGASPARGASE [Suspect]
     Active Substance: PEGASPARGASE
     Indication: Acute lymphocytic leukaemia
     Dosage: 4225 IU
     Route: 042
     Dates: start: 20181112, end: 20181112
  2. PEGASPARGASE [Suspect]
     Active Substance: PEGASPARGASE
     Dosage: 2500 IU/M2
     Dates: start: 20181226
  3. PREDNISOLONE [Suspect]
     Active Substance: PREDNISOLONE
     Indication: Acute lymphocytic leukaemia
     Dosage: 100 MG, D1 TO D28
     Route: 048
     Dates: start: 20181101
  4. TN UNSPECIFIED [Concomitant]
     Indication: Acute lymphocytic leukaemia
     Dosage: 2 MG, ON D8 -D15
     Route: 042
     Dates: start: 20181108
  5. TN UNSPECIFIED [Concomitant]
     Indication: Acute lymphocytic leukaemia
     Dosage: 67.6 MG,  D8, D15
     Route: 042
     Dates: start: 20181108
  6. TN UNSPECIFIED [Concomitant]
     Indication: Acute lymphocytic leukaemia
     Dosage: 30 MG ON D5, D9, D13
     Route: 037
     Dates: start: 20181105
  7. TN UNSPECIFIED [Concomitant]
     Indication: Acute lymphocytic leukaemia
     Dosage: 15 MG ON D5, D9, D13
     Dates: start: 20181105
  8. TN UNSPECIFIED [Concomitant]
     Indication: Acute lymphocytic leukaemia
     Dosage: 15 MG ON D1, D5, D9, D13
     Route: 037
     Dates: start: 20181112, end: 20181112
  9. CYCLOPHOSPHAMIDE [Concomitant]
     Active Substance: CYCLOPHOSPHAMIDE
     Indication: Acute lymphocytic leukaemia
     Dosage: 1690 MG  , D9
     Route: 042
     Dates: start: 20181109, end: 20181109

REACTIONS (3)
  - Cerebral thrombosis [Recovered/Resolved]
  - Sinusitis [Unknown]
  - Epilepsy [Recovered/Resolved]

NARRATIVE: CASE EVENT DATE: 20181109
